FAERS Safety Report 9267447 (Version 1)
Quarter: 2013Q2

REPORT INFORMATION
  Report Type: Spontaneous
  Country: US (occurrence: US)
  Receive Date: 20130502
  Receipt Date: 20130502
  Transmission Date: 20140414
  Serious: Yes (Death, Hospitalization)
  Sender: FDA-Public Use
  Company Number: US-GLAXOSMITHKLINE-A0777215A

PATIENT
  Age: 81 Year
  Sex: Female

DRUGS (7)
  1. AVANDIA [Suspect]
     Indication: DIABETES MELLITUS
     Dosage: 8MG PER DAY
     Route: 048
     Dates: start: 20040430, end: 20070602
  2. AVAPRO [Concomitant]
  3. HCTZ [Concomitant]
  4. LIPITOR [Concomitant]
  5. METFORMIN [Concomitant]
  6. ESTROPIPATE [Concomitant]
  7. GLYBURIDE [Concomitant]

REACTIONS (6)
  - Pneumonia aspiration [Fatal]
  - Myocardial infarction [Unknown]
  - Atrioventricular block complete [Unknown]
  - Atrial fibrillation [Unknown]
  - Dementia [Unknown]
  - Oedema [Unknown]
